FAERS Safety Report 5814007-0 (Version None)
Quarter: 2008Q3

REPORT INFORMATION
  Report Type: 
  Country: None (occurrence: None)
  Receive Date: 20080715
  Receipt Date: 20080708
  Transmission Date: 20090109
  Serious: Yes (Other)
  Sender: FDA-Public Use
  Company Number: 2008SP013894

PATIENT
  Age: 53 Year
  Sex: Male

DRUGS (17)
  1. PEG-INTRON [Suspect]
     Indication: HEPATITIS C
     Dosage: ;SC
     Route: 058
     Dates: start: 20080424
  2. RIBAVIRIN [Suspect]
     Indication: HEPATITIS C
     Dosage: ;PO
     Route: 048
     Dates: start: 20080424
  3. PROGRAF [Concomitant]
  4. PREDNISONE TAB [Concomitant]
  5. PROTONIX [Concomitant]
  6. BACTRIM [Concomitant]
  7. URSO 250 [Concomitant]
  8. METOPROLOL TARTRATE [Concomitant]
  9. MAGNESIUM [Concomitant]
  10. NORCO [Concomitant]
  11. CALCIUM [Concomitant]
  12. VITAMIN D [Concomitant]
  13. ACYCLOVIR [Concomitant]
  14. NYSTATIN SWISH AND SWALLOW [Concomitant]
  15. AMLODIPINE [Concomitant]
  16. LEXAPRO [Concomitant]
  17. INSULIN [Concomitant]

REACTIONS (1)
  - DEHYDRATION [None]
